FAERS Safety Report 8285809 (Version 3)
Quarter: 2013Q4

REPORT INFORMATION
  Report Type: Report from Study
  Country: US (occurrence: US)
  Receive Date: 20111213
  Receipt Date: 20131015
  Transmission Date: 20140711
  Serious: Yes (Other)
  Sender: FDA-Public Use
  Company Number: PHEH2011US011197

PATIENT
  Sex: Male

DRUGS (18)
  1. DIOVAN [Suspect]
     Dosage: 320 MG, QD
  2. VALSARTAN [Suspect]
     Dosage: UNK
  3. PRAVASTATIN [Concomitant]
     Dosage: 20 MG, BID
  4. ACIPHEX [Concomitant]
     Dosage: 20 MG, QD
  5. WARFARIN SODIUM [Concomitant]
     Dosage: 5 MG, UNK
  6. SOTALOL [Concomitant]
     Dosage: 80 MG, BID
  7. LORATADINE [Concomitant]
     Dosage: 10 MG, QD
  8. HYDROCHLOROTHIAZIDE [Concomitant]
     Dosage: 25 MG, QD
  9. XANAX [Concomitant]
  10. NITROSTAT [Concomitant]
  11. ACETAMINOPHEN [Concomitant]
  12. ZOLPIDEM [Concomitant]
  13. WARFARIN [Concomitant]
     Dosage: UNK
  14. COLCHICINE [Concomitant]
  15. HYDROCODONE [Concomitant]
     Dosage: UNK
  16. DILTIAZEM [Concomitant]
     Dosage: 60 MG, BID
  17. ADVAIR DISKUS [Concomitant]
     Dosage: 2 DF A DAY
  18. ACETYLSALICYLIC ACID [Concomitant]
     Dosage: UNK

REACTIONS (2)
  - Cerebrovascular accident [Unknown]
  - Amnesia [Unknown]
